FAERS Safety Report 15334144 (Version 1)
Quarter: 2018Q3

REPORT INFORMATION
  Report Type: Spontaneous
  Country: NL (occurrence: NL)
  Receive Date: 20180830
  Receipt Date: 20180830
  Transmission Date: 20181010
  Serious: Yes (Disabling)
  Sender: FDA-Public Use
  Company Number: NL-SAKK-2018SA236767AA

PATIENT
  Age: 60 Year
  Sex: Male
  Weight: 83 kg

DRUGS (9)
  1. XELJANZ [Suspect]
     Active Substance: TOFACITINIB CITRATE
     Indication: RHEUMATOID ARTHRITIS
     Dosage: 5 MG, QD
     Route: 065
     Dates: start: 20180319
  2. NATRIUMRISEDRONAAT SANDOZ WEKELIJKS [Concomitant]
     Dosage: 35 MG, QW
     Route: 065
     Dates: start: 20180531, end: 20180704
  3. PANTOPRAZOL AUROBINDO [Concomitant]
     Active Substance: PANTOPRAZOLE SODIUM
     Dosage: 40 MG, QD
     Route: 065
     Dates: start: 20180605
  4. ARAVA [Suspect]
     Active Substance: LEFLUNOMIDE
     Dosage: 10 MG, QD
     Route: 065
     Dates: start: 20161024, end: 20180610
  5. LEFLUNOMIDE. [Concomitant]
     Active Substance: LEFLUNOMIDE
     Dosage: 20 MG, QD
     Route: 065
     Dates: start: 20180531, end: 20180630
  6. AMOXICILLINE [AMOXICILLIN] [Concomitant]
     Dosage: 1 DF, Q8H
     Route: 065
  7. PREDNISON [Concomitant]
     Active Substance: PREDNISONE
     Dosage: 5 MG, QD
     Route: 065
     Dates: start: 20180605
  8. HYDROCHLOORTHIAZIDE [Concomitant]
     Active Substance: HYDROCHLOROTHIAZIDE
     Dosage: 12 MG, QD
     Route: 065
     Dates: start: 20180529
  9. METOPROLOL SUCCINATE. [Concomitant]
     Active Substance: METOPROLOL SUCCINATE
     Dosage: 200 MG, QD
     Route: 065
     Dates: start: 20180529

REACTIONS (1)
  - Paraplegia [Not Recovered/Not Resolved]

NARRATIVE: CASE EVENT DATE: 20180610
